FAERS Safety Report 12908438 (Version 2)
Quarter: 2016Q4

REPORT INFORMATION
  Report Type: Spontaneous
  Country: US (occurrence: US)
  Receive Date: 20161103
  Receipt Date: 20161117
  Transmission Date: 20170207
  Serious: No
  Sender: FDA-Public Use
  Company Number: US-PFIZER INC-2015358374

PATIENT
  Age: 78 Year
  Sex: Male

DRUGS (2)
  1. EPIPEN [Suspect]
     Active Substance: EPINEPHRINE
     Dosage: 0.3 G, UNK (AUTO INJECTOR 0.3G)
  2. IODINE. [Suspect]
     Active Substance: IODINE
     Dosage: UNK
     Route: 048

REACTIONS (2)
  - Iodine allergy [Unknown]
  - Drug hypersensitivity [Unknown]
